FAERS Safety Report 15051200 (Version 2)
Quarter: 2019Q2

REPORT INFORMATION
  Report Type: Spontaneous
  Country: US (occurrence: US)
  Receive Date: 20180622
  Receipt Date: 20190621
  Transmission Date: 20190711
  Serious: No
  Sender: FDA-Public Use
  Company Number: US-ASTELLAS-2017US030451

PATIENT
  Sex: Female

DRUGS (3)
  1. VESICARE [Suspect]
     Active Substance: SOLIFENACIN SUCCINATE
     Indication: POLLAKIURIA
     Route: 048
     Dates: start: 201707
  2. VESICARE [Suspect]
     Active Substance: SOLIFENACIN SUCCINATE
     Indication: URINARY INCONTINENCE
     Route: 048
  3. VESICARE [Suspect]
     Active Substance: SOLIFENACIN SUCCINATE
     Route: 048
     Dates: end: 20180801

REACTIONS (3)
  - Product use in unapproved indication [Unknown]
  - Constipation [Recovered/Resolved]
  - Treatment noncompliance [Not Recovered/Not Resolved]
